FAERS Safety Report 7233593-X (Version None)
Quarter: 2011Q1

REPORT INFORMATION
  Report Type: 
  Country: None (occurrence: None)
  Receive Date: 20110119
  Receipt Date: 20100629
  Transmission Date: 20110831
  Serious: No
  Sender: FDA-Public Use
  Company Number: US-PFIZER INC-2010067771

PATIENT
  Sex: Female
  Weight: 84.4 kg

DRUGS (1)
  1. AROMASIN [Suspect]
     Indication: BREAST CANCER FEMALE
     Dosage: 25 MG, 1X/DAY
     Route: 048
     Dates: start: 20081215

REACTIONS (3)
  - BREAST TENDERNESS [None]
  - ABDOMINAL DISCOMFORT [None]
  - HOT FLUSH [None]
